FAERS Safety Report 11314530 (Version 2)
Quarter: 2016Q4

REPORT INFORMATION
  Report Type: Spontaneous
  Country: US (occurrence: US)
  Receive Date: 20150727
  Receipt Date: 20161011
  Transmission Date: 20170206
  Serious: Yes (Other)
  Sender: FDA-Public Use
  Company Number: US-PFIZER INC-2015245492

PATIENT
  Sex: Female

DRUGS (1)
  1. LYRICA [Suspect]
     Active Substance: PREGABALIN
     Dosage: UNK

REACTIONS (6)
  - Withdrawal syndrome [Unknown]
  - Insomnia [Unknown]
  - Seizure [Unknown]
  - Anxiety [Unknown]
  - Tremor [Unknown]
  - Nausea [Unknown]
